FAERS Safety Report 15721411 (Version 2)
Quarter: 2019Q1

REPORT INFORMATION
  Report Type: Spontaneous
  Country: US (occurrence: US)
  Receive Date: 20181214
  Receipt Date: 20190116
  Transmission Date: 20190417
  Serious: No
  Sender: FDA-Public Use
  Company Number: US-ASTRAZENECA-2018SF56605

PATIENT
  Age: 21453 Day
  Sex: Male
  Weight: 137 kg

DRUGS (1)
  1. BYDUREON BCISE [Suspect]
     Active Substance: EXENATIDE
     Indication: TYPE 2 DIABETES MELLITUS
     Dosage: 2.0MG UNKNOWN
     Route: 058
     Dates: start: 20181104

REACTIONS (6)
  - Glycosylated haemoglobin increased [Unknown]
  - Product dose omission [Not Recovered/Not Resolved]
  - Wrong technique in device usage process [Unknown]
  - Intentional product misuse [Unknown]
  - Needle issue [Unknown]
  - Device issue [Unknown]

NARRATIVE: CASE EVENT DATE: 20181125
